FAERS Safety Report 16525968 (Version 5)
Quarter: 2020Q3

REPORT INFORMATION
  Report Type: Spontaneous
  Country: FR (occurrence: FR)
  Receive Date: 20190703
  Receipt Date: 20200721
  Transmission Date: 20201102
  Serious: Yes (Death, Other)
  Sender: FDA-Public Use
  Company Number: FR-ROCHE-2347403

PATIENT
  Age: 68 Year
  Sex: Female

DRUGS (2)
  1. AVASTIN [Suspect]
     Active Substance: BEVACIZUMAB
     Indication: GLIOBLASTOMA
     Route: 065
     Dates: start: 201611
  2. BELUSTINE [Concomitant]
     Active Substance: LOMUSTINE

REACTIONS (7)
  - Subarachnoid haemorrhage [Unknown]
  - Off label use [Unknown]
  - Intentional product use issue [Unknown]
  - Extravasation blood [Unknown]
  - Overdose [Fatal]
  - Haemorrhage [Fatal]
  - Thrombocytopenia [Fatal]

NARRATIVE: CASE EVENT DATE: 201803
